FAERS Safety Report 7042180-8 (Version None)
Quarter: 2010Q4

REPORT INFORMATION
  Report Type: 
  Country: None (occurrence: None)
  Receive Date: 20101013
  Receipt Date: 20100730
  Transmission Date: 20110411
  Serious: No
  Sender: FDA-Public Use
  Company Number: US-ASTRAZENECA-2010SE35789

PATIENT
  Sex: Male

DRUGS (1)
  1. SYMBICORT [Suspect]
     Indication: DYSPNOEA
     Dosage: 160/4.5 UG
     Route: 055
     Dates: start: 20090101

REACTIONS (2)
  - INCORRECT DOSE ADMINISTERED [None]
  - RESPIRATORY DISORDER [None]
